FAERS Safety Report 5328251-2 (Version None)
Quarter: 2007Q2

REPORT INFORMATION
  Report Type: 
  Country: None (occurrence: None)
  Receive Date: 20070516
  Receipt Date: 20070516
  Transmission Date: 20071010
  Serious: No
  Sender: FDA-Public Use
  Company Number: None

PATIENT
  Sex: Female
  Weight: 113.3993 kg

DRUGS (2)
  1. LISINOPRIL AND HYDROCHLOROTHIAZIDE [Suspect]
     Indication: HYPERTENSION
     Dates: start: 20070307, end: 20070507
  2. LIPITOR [Concomitant]

REACTIONS (14)
  - ASTHENIA [None]
  - COUGH [None]
  - DEPRESSION [None]
  - DYSPHONIA [None]
  - DYSPNOEA [None]
  - FATIGUE [None]
  - FEAR [None]
  - GASTRIC DISORDER [None]
  - HEADACHE [None]
  - LETHARGY [None]
  - LISTLESS [None]
  - MUSCLE SPASMS [None]
  - SENSATION OF HEAVINESS [None]
  - SWELLING [None]
